FAERS Safety Report 7532230-4 (Version None)
Quarter: 2011Q2

REPORT INFORMATION
  Report Type: 
  Country: None (occurrence: None)
  Receive Date: 20110608
  Receipt Date: 20110531
  Transmission Date: 20111010
  Serious: Yes (Hospitalization)
  Sender: FDA-Public Use
  Company Number: PHHY2011US48739

PATIENT
  Age: 11 Year
  Sex: Male

DRUGS (8)
  1. ONDANSETRON [Suspect]
     Dosage: UNK
  2. ACTEYLCHOLINESTERASE [Suspect]
     Dosage: UNK
  3. PROPOFOL [Suspect]
     Dosage: UNK
  4. ANTICHOLINERGIC AGENTS [Suspect]
     Dosage: UNK
  5. ISOFLURANE [Suspect]
     Dosage: UNK
  6. PENTOTHAL [Suspect]
     Dosage: UNK
  7. PROPRANOLOL [Concomitant]
     Dosage: UNK
  8. PANCURONIUM BROMIDE [Suspect]
     Dosage: UNK

REACTIONS (1)
  - TORSADE DE POINTES [None]
